FAERS Safety Report 8770732 (Version 1)
Quarter: 2012Q4

REPORT INFORMATION
  Report Type: 
  Country: US (occurrence: US)
  Receive Date: 20120906
  Receipt Date: 20120906
  Transmission Date: 20130627
  Serious: Yes (Hospitalization)
  Sender: FDA-Public Use
  Company Number: US-BAYER-2012-091423

PATIENT
  Age: 25 Year
  Sex: Female

DRUGS (19)
  1. YAZ [Suspect]
     Dosage: UNK
  2. FLO-MAG 64 [Concomitant]
     Dosage: 2 tablets, daily
     Route: 048
  3. CEFUROXIME [Concomitant]
     Dosage: UNK
  4. LEVAQUIN [Concomitant]
     Dosage: UNK
  5. MEPRON [Concomitant]
     Indication: BABESIOSIS
     Dosage: 750 mg, UNK
     Route: 048
  6. CELEXA [Concomitant]
     Dosage: 40 mg, QD
     Route: 048
  7. PROTONIX [Concomitant]
     Dosage: 40 mg, QD
     Route: 048
  8. ACTIGALL [Concomitant]
     Dosage: 2 tablets, HS
     Route: 048
  9. TRAZODONE [Concomitant]
     Dosage: 75 mg, HS
     Route: 048
  10. URSODIOL [Concomitant]
     Dosage: 300 mg, UNK
  11. VYVANCE [Concomitant]
     Dosage: 70 mg, daily
     Route: 048
  12. CHLORELLA VULGARIS [Concomitant]
     Route: 048
  13. DOXYCYCLINE [Concomitant]
     Indication: LYME DISEASE
     Dosage: 400 mg, daily
     Route: 042
  14. PROAIR HFA [Concomitant]
     Dosage: 90 micrograms, UNK
     Route: 045
  15. AZITHROMYCIN [Concomitant]
     Dosage: 600 mg, UNK
     Route: 048
  16. HYOSCYAMINE SULFATE [Concomitant]
     Dosage: 0.125 mg, UNK
     Route: 048
  17. AMPHETAMINE SALTS [Concomitant]
     Dosage: 10 mg, UNK
  18. ADDERALL XR [Concomitant]
     Dosage: 30 mg, UNK
     Route: 048
  19. CARAFATE [Concomitant]
     Dosage: 1 g, UNK
     Route: 048

REACTIONS (2)
  - Pulmonary embolism [None]
  - Deep vein thrombosis [None]
